FAERS Safety Report 4611957-8 (Version None)
Quarter: 2005Q2

REPORT INFORMATION
  Report Type: 
  Country: None (occurrence: None)
  Receive Date: 20050308
  Receipt Date: 20050117
  Transmission Date: 20051028
  Serious: Yes (Other)
  Sender: FDA-Public Use
  Company Number: 2005UW00828

PATIENT
  Age: 58 Year
  Sex: Female
  Weight: 81.646 kg

DRUGS (1)
  1. CRESTOR [Suspect]
     Indication: BLOOD CHOLESTEROL INCREASED
     Dosage: 20 MG QAM PO
     Route: 048
     Dates: start: 20050115

REACTIONS (1)
  - POLLAKIURIA [None]
